FAERS Safety Report 7118023-0 (Version None)
Quarter: 2010Q4

REPORT INFORMATION
  Report Type: 
  Country: None (occurrence: None)
  Receive Date: 20101123
  Receipt Date: 20101109
  Transmission Date: 20110411
  Serious: No
  Sender: FDA-Public Use
  Company Number: US-JNJFOC-20101104823

PATIENT
  Sex: Male
  Weight: 117.94 kg

DRUGS (5)
  1. SANDOZ FENTANYL TRANSDERMAL SYSTEM [Suspect]
     Indication: MUSCULOSKELETAL PAIN
     Dosage: ( NDC 0781 7242 55)
     Route: 062
  2. SANDOZ FENTANYL TRANSDERMAL SYSTEM [Suspect]
     Indication: BACK PAIN
     Dosage: ( NDC 0781 7242 55)
     Route: 062
  3. FENTANYL-100 [Suspect]
     Indication: MUSCULOSKELETAL PAIN
     Dosage: (NDC UNKNOWN)
     Route: 062
     Dates: start: 20100701
  4. FENTANYL-100 [Suspect]
     Indication: BACK PAIN
     Dosage: (NDC UNKNOWN)
     Route: 062
     Dates: start: 20100701
  5. UNKNOWN MEDICATION [Concomitant]
     Route: 065

REACTIONS (2)
  - DRUG INEFFECTIVE [None]
  - WRONG TECHNIQUE IN DRUG USAGE PROCESS [None]
